FAERS Safety Report 5650187-8 (Version None)
Quarter: 2008Q1

REPORT INFORMATION
  Report Type: 
  Country: None (occurrence: None)
  Receive Date: 20080228
  Receipt Date: 20080219
  Transmission Date: 20080703
  Serious: Yes (Hospitalization)
  Sender: FDA-Public Use
  Company Number: THYM-1000613

PATIENT
  Age: 58 Year
  Sex: Male

DRUGS (3)
  1. THYMOGLOBULIN [Suspect]
     Indication: LIVER TRANSPLANT
     Dosage: 1.5 MG/KG, QOD, INTRAVENOUS
     Route: 042
     Dates: start: 20071212, end: 20071216
  2. PROGRAF [Suspect]
     Indication: LIVER TRANSPLANT
     Dosage: QD
     Dates: start: 20071214
  3. CELLCEPT [Suspect]
     Indication: LIVER TRANSPLANT
     Dosage: 2 G,QD,
     Dates: start: 20071214

REACTIONS (1)
  - LIVER TRANSPLANT REJECTION [None]
